FAERS Safety Report 12393822 (Version 1)
Quarter: 2016Q2

REPORT INFORMATION
  Report Type: Spontaneous
  Country: TW (occurrence: TW)
  Receive Date: 20160523
  Receipt Date: 20160523
  Transmission Date: 20160815
  Serious: Yes (Other)
  Sender: FDA-Public Use
  Company Number: ALCN2016TW003586

PATIENT
  Sex: Male

DRUGS (4)
  1. FLAREX [Suspect]
     Active Substance: FLUOROMETHOLONE ACETATE
     Indication: CORNEAL OEDEMA
     Route: 047
  2. PREDNISOLONE ACETATE. [Suspect]
     Active Substance: PREDNISOLONE ACETATE
     Indication: CORNEAL OEDEMA
     Route: 047
  3. PREDNISOLONE ACETATE. [Suspect]
     Active Substance: PREDNISOLONE ACETATE
     Indication: CORNEAL DEPOSITS
  4. FLAREX [Suspect]
     Active Substance: FLUOROMETHOLONE ACETATE
     Indication: CORNEAL DEPOSITS

REACTIONS (3)
  - Corneal opacity [Unknown]
  - Cataract [Unknown]
  - Visual acuity reduced [Recovering/Resolving]
